FAERS Safety Report 14099661 (Version 1)
Quarter: 2017Q4

REPORT INFORMATION
  Report Type: Spontaneous
  Country: DE (occurrence: DE)
  Receive Date: 20171017
  Receipt Date: 20171017
  Transmission Date: 20180321
  Serious: Yes (Other)
  Sender: FDA-Public Use
  Company Number: DE-TEVA-814900GER

PATIENT
  Age: 52 Year
  Sex: Male

DRUGS (3)
  1. COPAXONE [Suspect]
     Active Substance: GLATIRAMER ACETATE
     Indication: MULTIPLE SCLEROSIS
     Dates: start: 2016, end: 2017
  2. COPAXONE [Suspect]
     Active Substance: GLATIRAMER ACETATE
     Dosage: 20 MILLIGRAM DAILY; PATIENT AGAIN SWITCHED TO 20 MG NOW, BECAUSE OF FLUSHES
     Dates: start: 2017
  3. COPAXONE [Suspect]
     Active Substance: GLATIRAMER ACETATE
     Dates: start: 2014, end: 2016

REACTIONS (2)
  - Injection site reaction [Not Recovered/Not Resolved]
  - Nephrolithiasis [Recovered/Resolved]
